FAERS Safety Report 4597742-4 (Version None)
Quarter: 2005Q1

REPORT INFORMATION
  Report Type: 
  Country: None (occurrence: None)
  Receive Date: 20050303
  Receipt Date: 20050222
  Transmission Date: 20050727
  Serious: Yes (Death, Life-Threatening, Hospitalization, Disabling, Other)
  Sender: FDA-Public Use
  Company Number: US-MERCK-0502USA03086

PATIENT
  Age: 82 Year
  Sex: Male

DRUGS (3)
  1. ZOCOR [Suspect]
     Indication: CORONARY ARTERY DISEASE
     Route: 048
     Dates: end: 20010101
  2. AMIODARONE [Concomitant]
     Route: 065
  3. VERAPAMIL [Concomitant]
     Route: 065

REACTIONS (1)
  - HEPATIC FAILURE [None]
